FAERS Safety Report 8348646-2 (Version None)
Quarter: 2012Q2

REPORT INFORMATION
  Report Type: 
  Country: None (occurrence: None)
  Receive Date: 20120510
  Receipt Date: 20120425
  Transmission Date: 20120825
  Serious: Yes (Death, Hospitalization)
  Sender: FDA-Public Use
  Company Number: DE-RANBAXY-2012US-56092

PATIENT
  Sex: Female

DRUGS (12)
  1. PANTOPRAZOLE [Suspect]
     Indication: GASTROOESOPHAGEAL REFLUX DISEASE
     Dosage: 20 MG
     Route: 048
     Dates: start: 20120127, end: 20120216
  2. ROCEPHIN [Suspect]
     Indication: LUNG DISORDER
     Dosage: 1G
     Route: 042
     Dates: start: 20120213, end: 20120216
  3. FLAGYL [Suspect]
     Indication: LUNG DISORDER
     Dosage: 500MG
     Route: 042
     Dates: start: 20120213, end: 20120216
  4. BISOPROLOL FUMARATE [Suspect]
     Indication: CARDIAC DISORDER
     Dosage: 2.5MG
     Route: 048
     Dates: start: 20120213
  5. ACETAMINOPHEN [Suspect]
     Indication: PRODUCT USED FOR UNKNOWN INDICATION
     Dosage: 3GM
     Route: 048
     Dates: start: 20120213, end: 20120216
  6. BRICANYL [Concomitant]
     Indication: PRODUCT USED FOR UNKNOWN INDICATION
     Route: 065
  7. ATROVENT [Concomitant]
     Indication: PRODUCT USED FOR UNKNOWN INDICATION
     Route: 065
  8. ACETAMINOPHEN [Suspect]
     Indication: PRODUCT USED FOR UNKNOWN INDICATION
     Dosage: 1G
     Route: 042
     Dates: start: 20120213, end: 20120216
  9. DIGOXIN [Suspect]
     Indication: ATRIAL FIBRILLATION
     Dosage: 0.25 MG, BID
     Route: 042
     Dates: start: 20120213
  10. FLUCONAZOLE [Suspect]
     Indication: LUNG DISORDER
     Dosage: UNK
     Route: 048
     Dates: start: 20120213, end: 20120216
  11. ASPIRIN [Suspect]
     Indication: PRODUCT USED FOR UNKNOWN INDICATION
     Dosage: 75MG
     Route: 048
     Dates: start: 20120127, end: 20120216
  12. LASIX [Suspect]
     Indication: CARDIAC DISORDER
     Dosage: 40MG (20MG/2ML)
     Route: 042
     Dates: start: 20120213

REACTIONS (2)
  - HEPATIC FAILURE [None]
  - HEPATITIS ACUTE [None]
